FAERS Safety Report 17816914 (Version 1)
Quarter: 2020Q2

REPORT INFORMATION
  Report Type: Spontaneous
  Country: US (occurrence: US)
  Receive Date: 20200522
  Receipt Date: 20200522
  Transmission Date: 20200714
  Serious: No
  Sender: FDA-Public Use
  Company Number: US-FDC LIMITED-2019RIS00460

PATIENT
  Age: 69 Year
  Sex: Female
  Weight: 56.69 kg

DRUGS (2)
  1. TIMOLOL MALEATE. [Suspect]
     Active Substance: TIMOLOL MALEATE
     Indication: OPEN ANGLE GLAUCOMA
     Dosage: 1 DROP, 1X/DAY ^EACH EYE ONCE IN THE MORNING^
     Route: 047
     Dates: start: 2019, end: 201907
  2. TRAVATAN [Concomitant]
     Active Substance: TRAVOPROST
     Dosage: 1 DROP, 1X/DAY

REACTIONS (4)
  - Vulvovaginal pruritus [Recovered/Resolved]
  - Pruritus [Recovered/Resolved]
  - Scleral discolouration [Recovered/Resolved]
  - Dysphagia [Recovered/Resolved]

NARRATIVE: CASE EVENT DATE: 201907
